FAERS Safety Report 10185010 (Version 1)
Quarter: 2014Q2

REPORT INFORMATION
  Report Type: Spontaneous
  Country: CA (occurrence: None)
  Receive Date: 20140520
  Receipt Date: 20140520
  Transmission Date: 20141212
  Serious: Yes (Other)
  Sender: FDA-Public Use
  Company Number: None

PATIENT
  Age: 31 Year
  Sex: Female

DRUGS (1)
  1. CYMBALTA [Suspect]
     Indication: NEURALGIA
     Dosage: 30 MG  ONCE DAILY TAKEN BY MOUTH
     Route: 048

REACTIONS (9)
  - Fatigue [None]
  - Malaise [None]
  - Nausea [None]
  - Vomiting [None]
  - Cold-stimulus headache [None]
  - Hot flush [None]
  - Pain [None]
  - Palpitations [None]
  - Withdrawal syndrome [None]
